FAERS Safety Report 5364383-0 (Version None)
Quarter: 2007Q2

REPORT INFORMATION
  Report Type: 
  Country: None (occurrence: None)
  Receive Date: 20070618
  Receipt Date: 20070531
  Transmission Date: 20071010
  Serious: Yes (Other)
  Sender: FDA-Public Use
  Company Number: 8024015

PATIENT
  Sex: Female
  Weight: 2.313 kg

DRUGS (3)
  1. KEPPRA [Suspect]
     Indication: CONVULSION
     Dosage: 500 MG TRP
     Route: 064
     Dates: start: 20050330
  2. KEPPRA [Suspect]
     Indication: CONVULSION
     Dosage: 1000 MG TRP
     Route: 064
     Dates: end: 20060829
  3. PRENATAL VITAMINS [Concomitant]

REACTIONS (3)
  - DRUG EXPOSURE DURING PREGNANCY [None]
  - PREMATURE BABY [None]
  - UMBILICAL HERNIA [None]
